FAERS Safety Report 14675075 (Version 1)
Quarter: 2018Q1

REPORT INFORMATION
  Report Type: Spontaneous
  Country: CA (occurrence: CA)
  Receive Date: 20180323
  Receipt Date: 20180323
  Transmission Date: 20180509
  Serious: Yes (Life-Threatening, Disabling)
  Sender: FDA-Public Use
  Company Number: CA-BAYER-2018-051871

PATIENT
  Age: 40 Year
  Sex: Female

DRUGS (2)
  1. MIRENA [Suspect]
     Active Substance: LEVONORGESTREL
     Indication: CONTRACEPTION
     Dosage: 20 MCG/24HR, CONT
     Route: 015
  2. MIRENA [Suspect]
     Active Substance: LEVONORGESTREL
     Indication: CONTRACEPTION

REACTIONS (10)
  - Disturbance in attention [Recovered/Resolved]
  - Marital problem [Recovered/Resolved]
  - Polymenorrhoea [Recovered/Resolved]
  - Menorrhagia [Recovered/Resolved]
  - Weight increased [Recovered/Resolved]
  - Amnesia [Recovered/Resolved]
  - Acne [Recovered/Resolved]
  - Galactorrhoea [Recovered/Resolved]
  - Impaired driving ability [Recovered/Resolved]
  - Confusional state [Recovered/Resolved]
